FAERS Safety Report 5792126-5 (Version None)
Quarter: 2008Q2

REPORT INFORMATION
  Report Type: 
  Country: None (occurrence: None)
  Receive Date: 20080626
  Receipt Date: 20080415
  Transmission Date: 20081010
  Serious: No
  Sender: FDA-Public Use
  Company Number: US-ASTRAZENECA-2008UW07761

PATIENT
  Age: 70 Year
  Sex: Male
  Weight: 83 kg

DRUGS (4)
  1. PULMICORT FLEXHALER [Suspect]
     Indication: COUGH
     Route: 055
     Dates: start: 20080101
  2. PULMICORT FLEXHALER [Suspect]
     Indication: WHEEZING
     Route: 055
     Dates: start: 20080101
  3. RHINOCORT [Concomitant]
     Route: 045
  4. NASONEX [Concomitant]

REACTIONS (1)
  - FLATULENCE [None]
